FAERS Safety Report 14162649 (Version 1)
Quarter: 2017Q4

REPORT INFORMATION
  Report Type: Spontaneous
  Country: GB (occurrence: GB)
  Receive Date: 20171106
  Receipt Date: 20171106
  Transmission Date: 20180321
  Serious: Yes (Other)
  Sender: FDA-Public Use
  Company Number: GB-PFIZER INC-2017472710

PATIENT
  Age: 19 Year
  Sex: Female
  Weight: 52 kg

DRUGS (1)
  1. PROVERA [Suspect]
     Active Substance: MEDROXYPROGESTERONE ACETATE
     Indication: AMENORRHOEA
     Dosage: 2 DF, 2X/DAY
     Route: 048
     Dates: start: 20171014, end: 20171018

REACTIONS (8)
  - Erythema [Unknown]
  - Pruritus [Unknown]
  - Dyspnoea [Recovered/Resolved with Sequelae]
  - Dizziness [Unknown]
  - Vomiting [Unknown]
  - Nasal congestion [Unknown]
  - Pyrexia [Unknown]
  - Somnolence [Unknown]

NARRATIVE: CASE EVENT DATE: 20171019
